FAERS Safety Report 5939983-7 (Version None)
Quarter: 2008Q4

REPORT INFORMATION
  Report Type: 
  Country: None (occurrence: None)
  Receive Date: 20081104
  Receipt Date: 20081024
  Transmission Date: 20090506
  Serious: Yes (Hospitalization, Other)
  Sender: FDA-Public Use
  Company Number: US-BAXTER-2008BH011448

PATIENT
  Sex: Male

DRUGS (3)
  1. DIANEAL [Suspect]
     Indication: RENAL FAILURE
     Route: 033
     Dates: start: 20080901
  2. AMPICILLIN [Concomitant]
     Indication: ENDOCARDITIS
     Dosage: DOSE UNIT:UNKNOWN
     Route: 042
  3. VANCOMYCIN HYDROCHLORIDE [Concomitant]
     Indication: ENDOCARDITIS
     Dosage: DOSE UNIT:UNKNOWN
     Route: 042

REACTIONS (3)
  - CATHETER SITE HAEMORRHAGE [None]
  - PROCEDURAL PAIN [None]
  - SPLENIC RUPTURE [None]
